FAERS Safety Report 10598993 (Version 1)
Quarter: 2014Q4

REPORT INFORMATION
  Report Type: Spontaneous
  Country: US (occurrence: None)
  Receive Date: 20141119
  Receipt Date: 20141119
  Transmission Date: 20150529
  Serious: No
  Sender: FDA-Public Use
  Company Number: 1000071725

PATIENT
  Age: 71 Year
  Sex: Female

DRUGS (1)
  1. TUDORZA PRESSAIR [Suspect]
     Active Substance: ACLIDINIUM BROMIDE
     Dates: start: 20141011

REACTIONS (2)
  - Throat irritation [None]
  - Cough [None]

NARRATIVE: CASE EVENT DATE: 20141013
